FAERS Safety Report 9129656 (Version 1)
Quarter: 2013Q1

REPORT INFORMATION
  Report Type: Spontaneous
  Country: IT (occurrence: IT)
  Receive Date: 20130125
  Receipt Date: 20130125
  Transmission Date: 20140127
  Serious: Yes (Hospitalization)
  Sender: FDA-Public Use
  Company Number: IT-BRISTOL-MYERS SQUIBB COMPANY-17304858

PATIENT
  Age: 72 Year
  Sex: Male

DRUGS (4)
  1. COUMADIN TABS 5 MG [Suspect]
     Indication: MYOCARDIAL ISCHAEMIA
     Route: 048
     Dates: start: 20110630, end: 20110630
  2. CARDIOASPIRIN [Suspect]
     Indication: MYOCARDIAL ISCHAEMIA
     Route: 048
     Dates: start: 20110630, end: 20120128
  3. NAPRILENE [Concomitant]
     Dosage: 1DF:0.5 UNIT
     Route: 048
  4. DILATREND [Concomitant]
     Route: 048

REACTIONS (2)
  - Dyspnoea [Unknown]
  - Epistaxis [Unknown]
